FAERS Safety Report 7128285-1 (Version None)
Quarter: 2010Q4

REPORT INFORMATION
  Report Type: 
  Country: None (occurrence: None)
  Receive Date: 20101130
  Receipt Date: 20101116
  Transmission Date: 20110411
  Serious: Yes (Hospitalization, Other)
  Sender: FDA-Public Use
  Company Number: PHHY2010JP62302

PATIENT
  Sex: Female
  Weight: 32 kg

DRUGS (7)
  1. DIOVAN [Suspect]
     Indication: HYPERTENSION
     Dosage: 80 MG, DAILY
     Route: 048
     Dates: start: 20100101
  2. DIOVAN [Suspect]
     Dosage: 40 MG, DAILY
     Route: 048
     Dates: start: 20100525, end: 20100720
  3. FAMOTIDINE [Concomitant]
     Indication: GASTRITIS
     Dosage: 20 MG, UNK
     Route: 048
     Dates: start: 20100525, end: 20100720
  4. ASPIRIN [Concomitant]
     Indication: CEREBRAL INFARCTION
     Dosage: 81MG
     Route: 048
     Dates: start: 20100608, end: 20100720
  5. OZEX [Concomitant]
     Dosage: 3 DF, DAILY
  6. NORVASK [Concomitant]
  7. CALCIUM POLYSTYRENE SULFONATE [Concomitant]

REACTIONS (3)
  - CHEST X-RAY ABNORMAL [None]
  - HYPERKALAEMIA [None]
  - PNEUMONIA BACTERIAL [None]
